FAERS Safety Report 5473727-0 (Version None)
Quarter: 2007Q4

REPORT INFORMATION
  Report Type: 
  Country: None (occurrence: None)
  Receive Date: 20071001
  Receipt Date: 20040524
  Transmission Date: 20080405
  Serious: Yes (Hospitalization)
  Sender: FDA-Public Use
  Company Number: US-PFIZER INC-2007057856

PATIENT
  Sex: Female

DRUGS (2)
  1. IRINOTECAN HCL [Suspect]
  2. TAXOL [Suspect]

REACTIONS (2)
  - ASTHENIA [None]
  - GAIT DISTURBANCE [None]
